FAERS Safety Report 18608436 (Version 2)
Quarter: 2021Q3

REPORT INFORMATION
  Report Type: Spontaneous
  Country: CZ (occurrence: CZ)
  Receive Date: 20201212
  Receipt Date: 20210719
  Transmission Date: 20211014
  Serious: Yes (Death, Other)
  Sender: FDA-Public Use
  Company Number: CZ-TEVA-2020-CZ-1857648

PATIENT
  Age: 48 Year
  Sex: Male

DRUGS (6)
  1. PACLITAXEL. [Suspect]
     Active Substance: PACLITAXEL
     Indication: HEPATIC CANCER
  2. ETOPOSIDE. [Suspect]
     Active Substance: ETOPOSIDE
     Indication: HEPATIC CANCER
  3. CISPLATIN. [Suspect]
     Active Substance: CISPLATIN
     Indication: NEUROENDOCRINE TUMOUR
     Dosage: 3 CYCLES
     Dates: start: 201504, end: 201506
  4. CISPLATIN. [Suspect]
     Active Substance: CISPLATIN
     Indication: HEPATIC CANCER
  5. ETOPOSIDE. [Suspect]
     Active Substance: ETOPOSIDE
     Indication: NEUROENDOCRINE TUMOUR
     Dosage: 3 CYCLES
     Route: 065
     Dates: start: 201504, end: 201506
  6. PACLITAXEL. [Suspect]
     Active Substance: PACLITAXEL
     Indication: NEUROENDOCRINE TUMOUR
     Dosage: 3 CYCLES
     Route: 065
     Dates: start: 201506, end: 201508

REACTIONS (9)
  - Vomiting [Unknown]
  - Haemoglobin decreased [Unknown]
  - Myelosuppression [Unknown]
  - Dehydration [Unknown]
  - Drug ineffective [Unknown]
  - Toxicity to various agents [Unknown]
  - Hepatomegaly [Unknown]
  - Nausea [Unknown]
  - Liver disorder [Unknown]

NARRATIVE: CASE EVENT DATE: 2015
